FAERS Safety Report 15010688 (Version 1)
Quarter: 2018Q2

REPORT INFORMATION
  Report Type: Spontaneous
  Country: US (occurrence: US)
  Receive Date: 20180529
  Receipt Date: 20180529
  Transmission Date: 20180711
  Serious: Yes (Disabling)
  Sender: FDA-Public Use
  Company Number: None

PATIENT
  Age: 54 Year
  Sex: Male
  Weight: 141.3 kg

DRUGS (11)
  1. HUMIRA [Suspect]
     Active Substance: ADALIMUMAB
     Indication: PSORIASIS
     Dosage: ?          QUANTITY:1 INJECTION(S);OTHER FREQUENCY:WEEKLY;?
     Route: 058
     Dates: start: 20151231, end: 20161231
  2. PROPLONATE [Concomitant]
  3. FLUTICASONE. [Concomitant]
     Active Substance: FLUTICASONE
  4. MULTIVITAMIN [Concomitant]
     Active Substance: VITAMINS
  5. DOCUSATE SODIUM. [Concomitant]
     Active Substance: DOCUSATE SODIUM
  6. HUMIRA [Suspect]
     Active Substance: ADALIMUMAB
     Indication: PSORIATIC ARTHROPATHY
     Dosage: ?          QUANTITY:1 INJECTION(S);OTHER FREQUENCY:WEEKLY;?
     Route: 058
     Dates: start: 20151231, end: 20161231
  7. OTEZLA [Concomitant]
     Active Substance: APREMILAST
  8. OMEPRAZOLE. [Concomitant]
     Active Substance: OMEPRAZOLE
  9. 81 MG DAILY ASPIRIN [Concomitant]
  10. FISH OIL [Concomitant]
     Active Substance: FISH OIL
  11. COSENTYX [Concomitant]
     Active Substance: SECUKINUMAB

REACTIONS (10)
  - Insurance issue [None]
  - Peripheral swelling [None]
  - Disease recurrence [None]
  - Drug dose omission [None]
  - Arthralgia [None]
  - Impaired work ability [None]
  - Tendon disorder [None]
  - Loss of personal independence in daily activities [None]
  - Pain in extremity [None]
  - Back pain [None]

NARRATIVE: CASE EVENT DATE: 20161231
